FAERS Safety Report 14840910 (Version 2)
Quarter: 2018Q2

REPORT INFORMATION
  Report Type: Spontaneous
  Country: US (occurrence: US)
  Receive Date: 20180503
  Receipt Date: 20180507
  Transmission Date: 20180711
  Serious: No
  Sender: FDA-Public Use
  Company Number: US-PFIZER INC-2018178822

PATIENT
  Age: 68 Year
  Sex: Female
  Weight: 60.32 kg

DRUGS (3)
  1. DOXYCYCLINE HYCLATE. [Suspect]
     Active Substance: DOXYCYCLINE HYCLATE
     Indication: HYPERSENSITIVITY
  2. CETIRIZINE [Suspect]
     Active Substance: CETIRIZINE HYDROCHLORIDE
     Dosage: 10 MG, DAILY
     Route: 048
  3. DOXYCYCLINE HYCLATE. [Suspect]
     Active Substance: DOXYCYCLINE HYCLATE
     Indication: SINUSITIS
     Dosage: 100 MG, 2X/DAY
     Route: 048
     Dates: start: 201710, end: 201804

REACTIONS (7)
  - Diarrhoea [Unknown]
  - Abdominal pain upper [Recovering/Resolving]
  - Hallucination, auditory [Not Recovered/Not Resolved]
  - Nausea [Unknown]
  - Insomnia [Not Recovered/Not Resolved]
  - Hallucination, visual [Not Recovered/Not Resolved]
  - Intentional product misuse [Unknown]

NARRATIVE: CASE EVENT DATE: 201804
